FAERS Safety Report 15388709 (Version 1)
Quarter: 2018Q3

REPORT INFORMATION
  Report Type: Spontaneous
  Country: US (occurrence: US)
  Receive Date: 20180907
  Receipt Date: 20180907
  Transmission Date: 20181010
  Serious: No
  Sender: FDA-Public Use
  Company Number: None

PATIENT
  Age: 76 Year
  Sex: Female
  Weight: 75.3 kg

DRUGS (9)
  1. METOPROLOL. [Concomitant]
     Active Substance: METOPROLOL
  2. OMEPRAZOLE. [Concomitant]
     Active Substance: OMEPRAZOLE
  3. VITAMIN D3 [Concomitant]
     Active Substance: CHOLECALCIFEROL
  4. TRAMADOL. [Concomitant]
     Active Substance: TRAMADOL
  5. ATORVASTATIN [Concomitant]
     Active Substance: ATORVASTATIN
  6. FERROUS [Concomitant]
     Active Substance: IRON
  7. IBUPROFEN. [Concomitant]
     Active Substance: IBUPROFEN
  8. LONSURF [Suspect]
     Active Substance: TIPIRACIL HYDROCHLORIDE\TRIFLURIDINE
     Indication: NEOPLASM MALIGNANT
     Route: 048
     Dates: start: 20180829
  9. DONEPEZIL. [Concomitant]
     Active Substance: DONEPEZIL

REACTIONS (1)
  - Fatigue [None]

NARRATIVE: CASE EVENT DATE: 20180905
